FAERS Safety Report 11801300 (Version 1)
Quarter: 2015Q4

REPORT INFORMATION
  Report Type: Other
  Country: BR (occurrence: BR)
  Receive Date: 20151204
  Receipt Date: 20151204
  Transmission Date: 20160305
  Serious: Yes (Congenital Anomaly)
  Sender: FDA-Public Use
  Company Number: BR-SILARX PHARMACEUTICALS, INC-1045043

PATIENT
  Sex: Male
  Weight: 3.41 kg

DRUGS (5)
  1. LAMIVUDINE. [Suspect]
     Active Substance: LAMIVUDINE
  2. KALETRA [Suspect]
     Active Substance: LOPINAVIR\RITONAVIR
  3. TENOFOVIR DISOPROXIL FUMARATE. [Suspect]
     Active Substance: TENOFOVIR DISOPROXIL FUMARATE
  4. LAMIVUDINE AND ZIDOVUDINE [Suspect]
     Active Substance: LAMIVUDINE\ZIDOVUDINE
  5. EFAVIRENZ [Suspect]
     Active Substance: EFAVIRENZ

REACTIONS (3)
  - Peyronie^s disease [None]
  - Congenital anomaly [Unknown]
  - Congenital skin dimples [None]
